FAERS Safety Report 4534715-1 (Version None)
Quarter: 2004Q4

REPORT INFORMATION
  Report Type: 
  Country: None (occurrence: None)
  Receive Date: 20041222
  Receipt Date: 20031201
  Transmission Date: 20050328
  Serious: No
  Sender: FDA-Public Use
  Company Number: US-BRISTOL-MYERS SQUIBB COMPANY-12447736

PATIENT
  Age: 83 Year
  Sex: Female
  Weight: 54 kg

DRUGS (3)
  1. PRAVACHOL [Suspect]
     Indication: BLOOD CHOLESTEROL INCREASED
     Dosage: DURATION OF THERAPY: 3-4 YEARS
     Route: 048
  2. BETAPACE [Concomitant]
  3. NORVASC [Concomitant]

REACTIONS (3)
  - ASTHENIA [None]
  - FATIGUE [None]
  - HYPOAESTHESIA [None]
